FAERS Safety Report 10472145 (Version 1)
Quarter: 2014Q3

REPORT INFORMATION
  Report Type: Spontaneous
  Country: US (occurrence: None)
  Receive Date: 20140923
  Receipt Date: 20140923
  Transmission Date: 20150326
  Serious: No
  Sender: FDA-Public Use
  Company Number: None

PATIENT
  Age: 77 Year
  Sex: Male
  Weight: 83.1 kg

DRUGS (1)
  1. TUBERCULIN, PURIFIED PROTEIN DERIVATIVE [Suspect]
     Active Substance: TUBERCULIN PURIFIED PROTEIN DERIVATIVE
     Indication: INFECTION PROPHYLAXIS
     Dates: start: 20140513, end: 20140516

REACTIONS (1)
  - Skin irritation [None]

NARRATIVE: CASE EVENT DATE: 20140516
